FAERS Safety Report 20846829 (Version 3)
Quarter: 2022Q4

REPORT INFORMATION
  Report Type: Spontaneous
  Country: US (occurrence: None)
  Receive Date: 20220519
  Receipt Date: 20221123
  Transmission Date: 20230113
  Serious: No
  Sender: FDA-Public Use
  Company Number: 2022A167854

PATIENT
  Age: 65 Year
  Sex: Female
  Weight: 75.4 kg

DRUGS (3)
  1. BUDESONIDE\FORMOTEROL\GLYCOPYRRONIUM [Suspect]
     Active Substance: BUDESONIDE\FORMOTEROL\GLYCOPYRRONIUM
     Indication: Chronic obstructive pulmonary disease
     Dosage: 160/9/4.8 MCG, TWO INHALATIONS, TWO TIMES A DAY
     Route: 055
     Dates: start: 2021
  2. BUDESONIDE\FORMOTEROL\GLYCOPYRRONIUM [Suspect]
     Active Substance: BUDESONIDE\FORMOTEROL\GLYCOPYRRONIUM
     Indication: Chronic obstructive pulmonary disease
     Route: 055
     Dates: start: 20220301, end: 20220505
  3. SYMBICORT [Suspect]
     Active Substance: BUDESONIDE\FORMOTEROL FUMARATE DIHYDRATE
     Indication: Chronic obstructive pulmonary disease
     Dosage: TWO TIMES A DAY
     Route: 055
     Dates: end: 2021

REACTIONS (5)
  - Oral candidiasis [Recovered/Resolved]
  - Skin fissures [Not Recovered/Not Resolved]
  - Wrong technique in device usage process [Unknown]
  - Off label use [Unknown]
  - Device leakage [Unknown]

NARRATIVE: CASE EVENT DATE: 20210101
